FAERS Safety Report 7097466-8 (Version None)
Quarter: 2010Q4

REPORT INFORMATION
  Report Type: 
  Country: None (occurrence: None)
  Receive Date: 20101111
  Receipt Date: 20101108
  Transmission Date: 20110411
  Serious: Yes (Hospitalization)
  Sender: FDA-Public Use
  Company Number: JP-GENENTECH-309313

PATIENT
  Age: 76 Year
  Sex: Female

DRUGS (5)
  1. ACTIVASE [Suspect]
     Indication: CEREBRAL THROMBOSIS
     Dosage: 19.8 MIU, QD
     Route: 042
     Dates: start: 20101004, end: 20101004
  2. RADICUT [Suspect]
     Indication: CEREBRAL THROMBOSIS
     Dosage: 30 MG, BID
     Route: 041
     Dates: start: 20101004, end: 20101010
  3. HEPARIN SODIUM [Suspect]
     Indication: CEREBRAL THROMBOSIS
     Dosage: UNK
     Dates: start: 20101006, end: 20101006
  4. ASPIRIN [Concomitant]
     Indication: PRODUCT USED FOR UNKNOWN INDICATION
     Dosage: UNK
     Route: 048
     Dates: start: 20101008
  5. VASODILATOR [Concomitant]
     Indication: PRODUCT USED FOR UNKNOWN INDICATION

REACTIONS (1)
  - LIVER DISORDER [None]
